FAERS Safety Report 6502998-4 (Version None)
Quarter: 2009Q4

REPORT INFORMATION
  Report Type: 
  Country: None (occurrence: None)
  Receive Date: 20091217
  Receipt Date: 20091204
  Transmission Date: 20100525
  Serious: Yes (Hospitalization, Other)
  Sender: FDA-Public Use
  Company Number: US-ELI_LILLY_AND_COMPANY-US200912003065

PATIENT
  Sex: Female

DRUGS (13)
  1. FORTEO [Suspect]
     Dosage: 20 UG, DAILY (1/D)
     Dates: start: 20090501
  2. FORTEO [Suspect]
     Dosage: UNKNOWN
  3. DIOVAN [Concomitant]
     Dosage: 80 MG, EACH MORNING
  4. DIOVAN [Concomitant]
     Dosage: 60 MG, EACH EVENING
  5. COUMADIN [Concomitant]
     Dosage: 5 MG, DAILY (1/D)
  6. METOPROLOL TARTRATE [Concomitant]
     Dosage: 50 MG, 2/D
  7. LASIX [Concomitant]
     Dosage: 40 MG, DAILY (1/D)
  8. PRAVASTATIN [Concomitant]
     Dosage: 80 MG, DAILY (1/D)
  9. PLAVIX [Concomitant]
     Dosage: 75 MG, DAILY (1/D)
  10. DIGOXIN [Concomitant]
     Dosage: 0.125 MG, DAILY (1/D)
  11. AMLODIPINE [Concomitant]
     Dosage: 5 MG, 2/D
  12. IMDUR [Concomitant]
     Dosage: 60 MG, DAILY (1/D)
  13. ASPIRIN [Concomitant]
     Dosage: 80 MG, DAILY (1/D)

REACTIONS (1)
  - VASCULAR GRAFT OCCLUSION [None]
